FAERS Safety Report 6067594-4 (Version None)
Quarter: 2009Q1

REPORT INFORMATION
  Report Type: 
  Country: None (occurrence: None)
  Receive Date: 20090205
  Receipt Date: 20090129
  Transmission Date: 20090719
  Serious: Yes (Hospitalization)
  Sender: FDA-Public Use
  Company Number: FR-ABBOTT-08P-056-0472293-00

PATIENT
  Sex: Female
  Weight: 103 kg

DRUGS (3)
  1. HUMIRA [Suspect]
     Indication: RHEUMATOID ARTHRITIS
     Route: 058
     Dates: start: 20040701, end: 20080501
  2. HUMIRA [Suspect]
     Route: 058
     Dates: start: 20080601
  3. ADALIMUMAB (COMMERCIAL) [Concomitant]
     Indication: RHEUMATOID ARTHRITIS
     Dates: start: 20060601

REACTIONS (1)
  - PNEUMONIA [None]
